FAERS Safety Report 5976494-7 (Version None)
Quarter: 2008Q4

REPORT INFORMATION
  Report Type: 
  Country: None (occurrence: None)
  Receive Date: 20081125
  Receipt Date: 20081113
  Transmission Date: 20090506
  Serious: Yes (Hospitalization)
  Sender: FDA-Public Use
  Company Number: CHPA2008US19945

PATIENT
  Age: 40 Year
  Sex: Female

DRUGS (5)
  1. MAALOX ANTACID/ANTIGAS MAX LIQ (NCH) (MAGNESIUM HYDROXIDE, ALUMINIUM H [Suspect]
     Indication: GASTROOESOPHAGEAL REFLUX DISEASE
     Dosage: 8 TSP, PER DAY, ORAL
     Route: 048
     Dates: start: 20081112, end: 20081113
  2. OMEPRAZOLE [Suspect]
     Indication: GASTROOESOPHAGEAL REFLUX DISEASE
     Dosage: 1 DF, PER DAY, ORAL
     Route: 048
     Dates: start: 20081112, end: 20081113
  3. XANAX [Suspect]
     Indication: INSOMNIA
     Dosage: 1 DF, ONCE, ORAL
     Route: 048
     Dates: start: 20081113, end: 20081113
  4. IBUPROFEN [Suspect]
     Dosage: 1 DF, ONCE, ORAL
     Route: 048
     Dates: start: 20081113, end: 20081113
  5. ORAL CONTRACEPTIVE NOS (ORAL CONTRACEPTIVE NOS) [Concomitant]

REACTIONS (2)
  - HEPATITIS B [None]
  - IMPAIRED WORK ABILITY [None]
